FAERS Safety Report 10513404 (Version 6)
Quarter: 2014Q4

REPORT INFORMATION
  Report Type: Spontaneous
  Country: JP (occurrence: JP)
  Receive Date: 20141013
  Receipt Date: 20141219
  Transmission Date: 20150528
  Serious: Yes (Hospitalization)
  Sender: FDA-Public Use
  Company Number: JP-009507513-1410JPN005846

PATIENT
  Age: 78 Year
  Sex: Male
  Weight: 53 kg

DRUGS (10)
  1. JANUVIA [Suspect]
     Active Substance: SITAGLIPTIN PHOSPHATE
     Indication: DIABETES MELLITUS
     Dosage: 50 MG, QD, 30 MINUTES AFTER BREAKFAST
     Route: 048
     Dates: start: 20140720, end: 20141006
  2. LANSOPRAZOLE. [Concomitant]
     Active Substance: LANSOPRAZOLE
     Dosage: 10 MG, QD, 30 MINUTES AFTER BREAKFAST
     Route: 048
  3. RESLIN TABLETS 25 [Concomitant]
     Active Substance: TRAZODONE HYDROCHLORIDE
     Indication: INSOMNIA
     Dosage: 25 MG, AS NEEDED
     Route: 048
     Dates: end: 20140928
  4. MIYA-BM [Concomitant]
     Active Substance: CLOSTRIDIUM BUTYRICUM SPORES STRAIN M-55
     Dosage: 2 DF, BID, 30 MINUTES AFTER BREAKFAST AND DINNER
     Route: 048
  5. PENTASA [Concomitant]
     Active Substance: MESALAMINE
     Dosage: 2000 MG, BID, 30 MINUTES AFTER BREAKFAST AND DINNER
     Route: 048
  6. EDIROL [Concomitant]
     Active Substance: ELDECALCITOL
     Dosage: 0.75 MICROGRAM, QD, 30 MINUTES AFTER BREAKFAST
     Route: 048
     Dates: start: 20120828
  7. PREDONINE [Concomitant]
     Active Substance: PREDNISOLONE\PREDNISOLONE ACETATE\PREDNISOLONE SODIUM SUCCINATE
     Dosage: 15 MG, QD, 30 MINUTES AFTER BREAKFAST
     Route: 048
     Dates: start: 20140718, end: 20140928
  8. AZANIN [Concomitant]
     Active Substance: AZATHIOPRINE
     Dosage: 25 MG, QD, 30 MINUTES AFTER BREAKFAST
     Route: 048
     Dates: start: 20140703
  9. PARIET [Concomitant]
     Active Substance: RABEPRAZOLE SODIUM
     Dosage: 10 MG, QD, 30 MINUTES AFTER BREAKFAST
     Route: 048
  10. GLUFAST [Concomitant]
     Active Substance: MITIGLINIDE
     Dosage: 20 MG, TID, IMMEDIATELY BEFORE BREAKFAST, LUNCH AND DINNER
     Route: 048
     Dates: start: 20140718

REACTIONS (2)
  - Eyelid cyst [Recovered/Resolved]
  - Drug-induced liver injury [Recovered/Resolved]

NARRATIVE: CASE EVENT DATE: 20140901
